FAERS Safety Report 20610111 (Version 1)
Quarter: 2022Q1

REPORT INFORMATION
  Report Type: Spontaneous
  Country: GB (occurrence: GB)
  Receive Date: 20220318
  Receipt Date: 20220318
  Transmission Date: 20220423
  Serious: Yes (Other)
  Sender: FDA-Public Use
  Company Number: GB-MHRA-TPP40237879C1119915YC1646309711114

PATIENT
  Age: 58 Year
  Sex: Female
  Weight: 62 kg

DRUGS (15)
  1. CLARITHROMYCIN [Suspect]
     Active Substance: CLARITHROMYCIN
     Indication: Product used for unknown indication
     Dosage: 500 MILLIGRAM, ONCE A DAY (FOR 14 DAYS, TO TREA...)
     Route: 065
     Dates: start: 20220222
  2. ATORVASTATIN [Concomitant]
     Active Substance: ATORVASTATIN
     Indication: Product used for unknown indication
     Dosage: 1 DOSAGE FORM, ONCE A DAY
     Route: 065
     Dates: start: 20210722
  3. CALCIUM CARBONATE\CHOLECALCIFEROL [Concomitant]
     Active Substance: CALCIUM CARBONATE\CHOLECALCIFEROL
     Indication: Product used for unknown indication
     Dosage: 1 GRAM ((COLECALCIFEROL 1000UNITS/ CALCIUM CHEWABLE)...)
     Route: 065
     Dates: start: 20210316
  4. CEPHALEXIN [Concomitant]
     Active Substance: CEPHALEXIN
     Indication: Product used for unknown indication
     Dosage: 1 DOSAGE FORM, 3 TIMES A DAY
     Route: 065
     Dates: start: 20220303
  5. ELLESTE-SOLO [Concomitant]
     Indication: Product used for unknown indication
     Dosage: 1 DOSAGE FORM (2 TIMES EVERY WEEK)
     Route: 065
     Dates: start: 20210316
  6. FLUCONAZOLE [Concomitant]
     Active Substance: FLUCONAZOLE
     Indication: Product used for unknown indication
     Dosage: 1 DOSAGE FORM, EVERY WEEK
     Route: 065
     Dates: start: 20220214
  7. HYPROMELLOSES [Concomitant]
     Active Substance: HYPROMELLOSES
     Indication: Product used for unknown indication
     Dosage: 1 DOSAGE FORM (INSTIL INTO THE AFFECTED EYE(S) AS NEEDED)
     Route: 065
     Dates: start: 20210316
  8. LANSOPRAZOLE [Concomitant]
     Active Substance: LANSOPRAZOLE
     Indication: Product used for unknown indication
     Dosage: 1 DOSAGE FORM, ONCE A DAY (TO PROTECT THE STOMACH)
     Route: 065
     Dates: start: 20210316
  9. LEVOTHYROXINE [Concomitant]
     Active Substance: LEVOTHYROXINE
     Indication: Product used for unknown indication
     Dosage: 1 DOSAGE FORM, ONCE A DAY
     Route: 065
     Dates: start: 20210316
  10. LOPERAMIDE [Concomitant]
     Active Substance: LOPERAMIDE
     Indication: Diarrhoea
     Dosage: 1 DOSAGE FORM, TWO TIMES A DAY (AS NEEDED)
     Route: 065
     Dates: start: 20210316
  11. MIDODRINE HYDROCHLORIDE [Concomitant]
     Active Substance: MIDODRINE HYDROCHLORIDE
     Indication: Product used for unknown indication
     Dosage: 2 DOSAGE FORM, 3 TIMES A DAY
     Route: 065
     Dates: start: 20210316
  12. NOVORAPID [Concomitant]
     Active Substance: INSULIN ASPART
     Indication: Product used for unknown indication
     Dosage: UNK (APPROPRIATE NUMBER OF UNITS AS INST...)
     Route: 065
     Dates: start: 20210907
  13. TOUJEO [Concomitant]
     Active Substance: INSULIN GLARGINE
     Indication: Product used for unknown indication
     Dosage: UNK (AMBER 2 -FOR PATIENTS THAT WOULD OTHERWISE RECE...)
     Route: 065
     Dates: start: 20210316
  14. VENTOLIN [Concomitant]
     Active Substance: ALBUTEROL SULFATE
     Indication: Product used for unknown indication
     Dosage: UNK (ONE OR TWO PUFFS WHEN NEEDED FOR ...)
     Route: 055
     Dates: start: 20210316
  15. MINERAL OIL\PARAFFIN [Concomitant]
     Active Substance: MINERAL OIL\PARAFFIN
     Indication: Dry skin
     Dosage: UNK (APPLY LIBERALLY AS DIRECTED AS A MO...)
     Route: 065
     Dates: start: 20210316

REACTIONS (5)
  - Abdominal pain [Unknown]
  - Vomiting [Unknown]
  - Rash [Unknown]
  - Wheezing [Unknown]
  - Headache [Unknown]

NARRATIVE: CASE EVENT DATE: 20220303
